FAERS Safety Report 7676521-5 (Version None)
Quarter: 2011Q2

REPORT INFORMATION
  Report Type: 
  Country: None (occurrence: None)
  Receive Date: 20110620
  Receipt Date: 20110620
  Transmission Date: 20111010
  Serious: Yes (Hospitalization)
  Sender: FDA-Public Use
  Company Number: None

PATIENT
  Age: 38 Year
  Sex: Male
  Weight: 102.2 kg

DRUGS (9)
  1. SGN-35 (CAAC10-VCMMAE) INJECTION [Suspect]
     Indication: HODGKIN'S DISEASE
     Dosage: 1.2 MG/KG, Q21D, INTRAVENOUS
     Route: 042
     Dates: start: 20110413, end: 20110518
  2. NEULASTA [Concomitant]
  3. PREVACID [Concomitant]
  4. ZOFRAN [Concomitant]
  5. VINBLASTINE SULFATE [Suspect]
     Indication: HODGKIN'S DISEASE
     Dosage: 12.84 MG
     Dates: start: 20110413, end: 20110518
  6. ACETAMINOPHEN [Concomitant]
  7. DOXORUBICIN HCL [Suspect]
     Indication: HODGKIN'S DISEASE
     Dosage: 53.5 MG, UNK
     Dates: start: 20110413, end: 20110518
  8. DACARBAZINE [Suspect]
     Indication: HODGKIN'S DISEASE
     Dosage: 802.5 MG
     Dates: start: 20110413, end: 20110518
  9. BLEOMYCIN SULFATE [Suspect]
     Indication: HODGKIN'S DISEASE
     Dosage: 21.4 UNITS/M2
     Dates: start: 20110413, end: 20110518

REACTIONS (2)
  - FEBRILE NEUTROPENIA [None]
  - FATIGUE [None]
